FAERS Safety Report 10486915 (Version 1)
Quarter: 2014Q3

REPORT INFORMATION
  Report Type: Spontaneous
  Country: US (occurrence: None)
  Receive Date: 20140930
  Receipt Date: 20140930
  Transmission Date: 20150326
  Serious: Yes (Life-Threatening, Hospitalization)
  Sender: FDA-Public Use
  Company Number: None

PATIENT
  Age: 94 Year
  Sex: Male
  Weight: 55.5 kg

DRUGS (1)
  1. NITROFURANTOIN. [Suspect]
     Active Substance: NITROFURANTOIN
     Indication: URINARY TRACT INFECTION
     Route: 048
     Dates: start: 20140714, end: 20140718

REACTIONS (4)
  - Oropharyngeal pain [None]
  - Urticaria [None]
  - Stevens-Johnson syndrome [None]
  - Fatigue [None]

NARRATIVE: CASE EVENT DATE: 20140718
